FAERS Safety Report 25014101 (Version 1)
Quarter: 2025Q1

REPORT INFORMATION
  Report Type: Spontaneous
  Country: US (occurrence: US)
  Receive Date: 20250226
  Receipt Date: 20250226
  Transmission Date: 20250409
  Serious: No
  Sender: NOVA LABORATORIES LIMITED
  Company Number: US-Nova Laboratories Limited-2171794

PATIENT

DRUGS (1)
  1. PURIXAN [Suspect]
     Active Substance: MERCAPTOPURINE

REACTIONS (1)
  - Product storage error [Unknown]
